FAERS Safety Report 15814256 (Version 1)
Quarter: 2019Q1

REPORT INFORMATION
  Report Type: Spontaneous
  Country: US (occurrence: US)
  Receive Date: 20190111
  Receipt Date: 20190111
  Transmission Date: 20190417
  Serious: No
  Sender: FDA-Public Use
  Company Number: US-JAZZ-2018-US-018310

PATIENT
  Sex: Male

DRUGS (1)
  1. PRIALT [Suspect]
     Active Substance: ZICONOTIDE ACETATE
     Indication: PRODUCT USED FOR UNKNOWN INDICATION
     Dosage: SINGLE DOSE
     Route: 065
     Dates: start: 20181205, end: 20181205

REACTIONS (2)
  - Abdominal discomfort [Unknown]
  - Nasopharyngitis [Unknown]
